FAERS Safety Report 8979840 (Version 1)
Quarter: 2012Q4

REPORT INFORMATION
  Report Type: 
  Country: US (occurrence: US)
  Receive Date: 20121221
  Receipt Date: 20121221
  Transmission Date: 20130627
  Serious: Yes (Other)
  Sender: FDA-Public Use
  Company Number: PHEH2012US021659

PATIENT
  Age: 57 Year
  Sex: Male

DRUGS (4)
  1. ZOMETA [Suspect]
     Indication: MULTIPLE MYELOMA
     Dosage: 4 mg, every 4 week
     Route: 042
     Dates: start: 20110502, end: 20120530
  2. REVLIMID [Concomitant]
     Indication: MULTIPLE MYELOMA
     Dosage: 10 mg,daily 21/28
     Route: 048
     Dates: start: 20120530
  3. ASA [Concomitant]
     Indication: THROMBOSIS
     Dosage: 81 mg, daily
     Route: 048
     Dates: start: 20120530
  4. DURAGESIC [Concomitant]
     Dosage: 25 mg, q3d
     Route: 062

REACTIONS (3)
  - Osteonecrosis of jaw [Recovering/Resolving]
  - Pain in jaw [Unknown]
  - Jaw disorder [Unknown]
